FAERS Safety Report 25024603 (Version 3)
Quarter: 2025Q3

REPORT INFORMATION
  Report Type: Report from Study
  Country: JP (occurrence: JP)
  Receive Date: 20250228
  Receipt Date: 20250711
  Transmission Date: 20251020
  Serious: Yes (Death, Other)
  Sender: REGENERON
  Company Number: JP-ULTRAGENYX-JP-UGX-25-00412AA

PATIENT
  Sex: Male

DRUGS (1)
  1. EVINACUMAB [Suspect]
     Active Substance: EVINACUMAB
     Indication: Type IIa hyperlipidaemia
     Dosage: 6.2 MILLILITER, 4W, FORMUALTION: UNKNOWN
     Route: 041
     Dates: start: 20240507, end: 20250114

REACTIONS (2)
  - Aortic aneurysm rupture [Fatal]
  - Abdominal pain [Unknown]

NARRATIVE: CASE EVENT DATE: 20250101
